FAERS Safety Report 18566164 (Version 1)
Quarter: 2020Q4

REPORT INFORMATION
  Report Type: Spontaneous
  Country: US (occurrence: US)
  Receive Date: 20201201
  Receipt Date: 20201201
  Transmission Date: 20210114
  Serious: Yes (Hospitalization)
  Sender: FDA-Public Use
  Company Number: NVSC2020US317452

PATIENT
  Age: 49 Year
  Sex: Male

DRUGS (3)
  1. TAFINLAR [Suspect]
     Active Substance: DABRAFENIB MESYLATE
     Indication: MALIGNANT MELANOMA
     Dosage: UNK
     Route: 048
  2. TAFINLAR [Suspect]
     Active Substance: DABRAFENIB MESYLATE
     Indication: METASTASES TO LIVER
  3. TAFINLAR [Suspect]
     Active Substance: DABRAFENIB MESYLATE
     Indication: MALIGNANT LYMPHOID NEOPLASM
     Dosage: 150 MG, BID
     Route: 048
     Dates: start: 20201030

REACTIONS (2)
  - Product availability issue [Unknown]
  - Infection [Unknown]

NARRATIVE: CASE EVENT DATE: 20201007
